FAERS Safety Report 14362536 (Version 2)
Quarter: 2018Q1

REPORT INFORMATION
  Report Type: Spontaneous
  Country: US (occurrence: US)
  Receive Date: 20180108
  Receipt Date: 20180108
  Transmission Date: 20180509
  Serious: Yes (Hospitalization)
  Sender: FDA-Public Use
  Company Number: US-CELGENEUS-USA-20180100688

PATIENT
  Age: 10 Year
  Sex: Male

DRUGS (2)
  1. REVLIMID [Suspect]
     Active Substance: LENALIDOMIDE
     Indication: BRAIN NEOPLASM MALIGNANT
     Dosage: 25 MILLIGRAM
     Route: 048
     Dates: start: 20170202
  2. REVLIMID [Suspect]
     Active Substance: LENALIDOMIDE
     Indication: OFF LABEL USE
     Dosage: 50 MILLIGRAM
     Route: 048
     Dates: start: 201708

REACTIONS (3)
  - Neutrophil count decreased [Unknown]
  - Seizure [Unknown]
  - Hypokalaemia [Unknown]

NARRATIVE: CASE EVENT DATE: 20171226
